FAERS Safety Report 8098221-2 (Version None)
Quarter: 2012Q1

REPORT INFORMATION
  Report Type: 
  Country: None (occurrence: None)
  Receive Date: 20120128
  Receipt Date: 20110806
  Transmission Date: 20120608
  Serious: No
  Sender: FDA-Public Use
  Company Number: US-ABBOTT-11P-163-0844564-00

PATIENT
  Age: 53 Year
  Sex: Female

DRUGS (11)
  1. SIMVASTATIN [Concomitant]
     Indication: BLOOD CHOLESTEROL INCREASED
  2. CARVEDILOL [Concomitant]
     Indication: HYPERTENSION
     Dosage: 2 TWICE DAILY
  3. FUROSEMIDE [Concomitant]
     Indication: PRODUCT USED FOR UNKNOWN INDICATION
     Dosage: 2 IF VERY SWOLLEN
  4. POTASSIUM [Concomitant]
     Indication: PRODUCT USED FOR UNKNOWN INDICATION
  5. HUMIRA [Suspect]
     Indication: RHEUMATOID ARTHRITIS
     Dates: start: 20110501
  6. ASPIRIN [Concomitant]
     Indication: BLOOD PRESSURE
     Dosage: DAILY
  7. TIZANIDINE HCL [Concomitant]
     Indication: PAIN
  8. DOCUSATE SODIUM [Concomitant]
     Indication: CONSTIPATION
  9. SERTRALINE HYDROCHLORIDE [Concomitant]
     Indication: STRESS
  10. ICCVS NON ASPIRIN [Concomitant]
     Indication: PRODUCT USED FOR UNKNOWN INDICATION
     Dosage: 1 EVERY 4-6 HOURS DAILY AS NEEDED
  11. METFORMIN HCL [Concomitant]
     Indication: DIABETES MELLITUS

REACTIONS (3)
  - INJECTION SITE HAEMATOMA [None]
  - INJECTION SITE PAIN [None]
  - INJECTION SITE URTICARIA [None]
